FAERS Safety Report 26125822 (Version 2)
Quarter: 2025Q4

REPORT INFORMATION
  Report Type: Spontaneous
  Country: US (occurrence: US)
  Receive Date: 20251205
  Receipt Date: 20251205
  Transmission Date: 20260119
  Serious: No
  Sender: NOVO NORDISK
  Company Number: US-NOVOPROD-1461426

PATIENT
  Age: 65 Year
  Sex: Female

DRUGS (4)
  1. NOVOLIN N [Suspect]
     Active Substance: INSULIN HUMAN
     Indication: Type 2 diabetes mellitus
     Dosage: 31 UNITS EVERY OTHER DAY
     Route: 058
     Dates: start: 2020
  2. NOVOLIN N [Suspect]
     Active Substance: INSULIN HUMAN
     Dosage: 15 IU
     Route: 058
  3. NOVOLIN R [Suspect]
     Active Substance: INSULIN HUMAN
     Indication: Type 2 diabetes mellitus
     Dosage: 17 UNITS EVERY OTHER DAY
     Route: 058
     Dates: start: 2020
  4. NOVOLIN R [Suspect]
     Active Substance: INSULIN HUMAN
     Dosage: 30 IU
     Route: 058

REACTIONS (3)
  - Weight decreased [Unknown]
  - Weight increased [Unknown]
  - Incorrect dose administered [Recovered/Resolved]
